FAERS Safety Report 4627376-4 (Version None)
Quarter: 2005Q1

REPORT INFORMATION
  Report Type: 
  Country: None (occurrence: None)
  Receive Date: 20050330
  Receipt Date: 20050318
  Transmission Date: 20050727
  Serious: Yes (Other)
  Sender: FDA-Public Use
  Company Number: HQWYE178418MAR05

PATIENT
  Sex: Male

DRUGS (3)
  1. CORDARONE [Suspect]
     Indication: EXTRASYSTOLES
     Dosage: 800 MG PER WEEK(MON/WED/FRI), ORAL
     Route: 048
  2. DIURETICS [Concomitant]
  3. BETA BLOCKING AGENTS [Concomitant]

REACTIONS (2)
  - MOVEMENT DISORDER [None]
  - PSYCHOTIC DISORDER [None]
